FAERS Safety Report 9150897 (Version 1)
Quarter: 2013Q1

REPORT INFORMATION
  Report Type: Spontaneous
  Country: US (occurrence: US)
  Receive Date: 20130308
  Receipt Date: 20130308
  Transmission Date: 20140127
  Serious: No
  Sender: FDA-Public Use
  Company Number: US-GLAXOSMITHKLINE-A0965831A

PATIENT
  Age: 63 Year
  Sex: Female

DRUGS (2)
  1. NICORETTE CINNAMON SURGE [Suspect]
     Indication: EX-TOBACCO USER
  2. NICORETTE [Suspect]
     Indication: EX-TOBACCO USER

REACTIONS (5)
  - Oral discomfort [Not Recovered/Not Resolved]
  - Hiccups [Recovered/Resolved]
  - Stomatitis [Not Recovered/Not Resolved]
  - Intentional drug misuse [Not Recovered/Not Resolved]
  - Nicotine dependence [Not Recovered/Not Resolved]
